FAERS Safety Report 7180675-7 (Version None)
Quarter: 2010Q4

REPORT INFORMATION
  Report Type: 
  Country: None (occurrence: None)
  Receive Date: 20101221
  Receipt Date: 20101213
  Transmission Date: 20110411
  Serious: Yes (Hospitalization)
  Sender: FDA-Public Use
  Company Number: JP-ABBOTT-10P-087-0691207-00

PATIENT
  Age: 30 Year
  Sex: Male

DRUGS (14)
  1. KALETRA [Suspect]
     Indication: HIV INFECTION
     Route: 048
  2. EFAVIRENZ [Suspect]
     Indication: HIV INFECTION
     Route: 048
     Dates: start: 20090928, end: 20100217
  3. AZITHROMYCIN HYDRATE [Suspect]
     Indication: ANTIBIOTIC PROPHYLAXIS
     Dates: start: 20090910
  4. VALGANCICLOVIR HCL [Suspect]
     Indication: CYTOMEGALOVIRUS CHORIORETINITIS
     Route: 048
     Dates: start: 20090903, end: 20100226
  5. VALGANCICLOVIR HCL [Suspect]
     Route: 048
     Dates: start: 20100227, end: 20100313
  6. FOSAMPRENAVIR CALCIUM HYDRATE [Suspect]
     Indication: HIV INFECTION
     Route: 048
     Dates: start: 20091113, end: 20100217
  7. LAMIVUDINE [Concomitant]
     Indication: HIV INFECTION
     Route: 048
     Dates: start: 20090909, end: 20100217
  8. ABACAVIR SULFATE [Concomitant]
     Indication: HIV INFECTION
     Route: 048
     Dates: start: 20090909, end: 20100217
  9. EMTRICITABINE/TENOFOVIR DISOPROXIL FUMARATE [Concomitant]
     Indication: HIV INFECTION
     Route: 048
     Dates: start: 20100218
  10. DARUNAVIR ETHANOLATE [Concomitant]
     Indication: HIV INFECTION
     Route: 048
     Dates: start: 20100218
  11. RALTEGRAVIR POTASSIUM [Concomitant]
     Indication: HIV INFECTION
     Route: 048
     Dates: start: 20091008, end: 20100217
  12. PREDNISOLONE ACETATE [Concomitant]
     Indication: HISTIOCYTOSIS HAEMATOPHAGIC
     Dosage: 5-1 MG
     Dates: end: 20100218
  13. SULFAMETHOXAZOLE AND TRIMETHOPRIM [Concomitant]
     Indication: ANTIFUNGAL PROPHYLAXIS
     Route: 048
     Dates: start: 20090908
  14. NORVIR [Concomitant]
     Indication: HIV INFECTION
     Route: 048
     Dates: start: 20100218

REACTIONS (5)
  - BLOOD ALKALINE PHOSPHATASE INCREASED [None]
  - BRONCHOPULMONARY ASPERGILLOSIS [None]
  - GAMMA-GLUTAMYLTRANSFERASE INCREASED [None]
  - LYMPHOMA [None]
  - PLATELET COUNT DECREASED [None]
